FAERS Safety Report 5086974-7 (Version None)
Quarter: 2006Q3

REPORT INFORMATION
  Report Type: 
  Country: None (occurrence: None)
  Receive Date: 20060818
  Receipt Date: 20060805
  Transmission Date: 20061208
  Serious: Yes (Hospitalization)
  Sender: FDA-Public Use
  Company Number: 2006PV018826

PATIENT
  Age: 65 Year
  Sex: Male
  Weight: 140.6151 kg

DRUGS (5)
  1. SYMLIN [Suspect]
     Indication: DIABETES MELLITUS NON-INSULIN-DEPENDENT
     Dosage: SEE IMAGE
     Route: 058
     Dates: start: 20060501, end: 20060101
  2. SYMLIN [Suspect]
     Indication: DIABETES MELLITUS NON-INSULIN-DEPENDENT
     Dosage: SEE IMAGE
     Route: 058
     Dates: start: 20060101, end: 20060804
  3. INSULIN [Concomitant]
  4. OXYCONTIN [Concomitant]
  5. OXYGEN [Concomitant]

REACTIONS (6)
  - CHROMATURIA [None]
  - CONSTIPATION [None]
  - DYSPNOEA [None]
  - OXYGEN SATURATION DECREASED [None]
  - PANCREATITIS [None]
  - WEIGHT DECREASED [None]
